FAERS Safety Report 25802965 (Version 1)
Quarter: 2025Q3

REPORT INFORMATION
  Report Type: Spontaneous
  Country: US (occurrence: None)
  Receive Date: 20250914
  Receipt Date: 20250914
  Transmission Date: 20251021
  Serious: Yes (Hospitalization, Disabling, Other)
  Sender: FDA-CTU
  Company Number: None

PATIENT
  Age: 37 Year
  Sex: Female

DRUGS (21)
  1. LISINOPRIL [Suspect]
     Active Substance: LISINOPRIL
     Indication: Hypertensive emergency
     Route: 048
  2. FLONASE [Concomitant]
     Active Substance: FLUTICASONE PROPIONATE
  3. MECLIZINE [Concomitant]
     Active Substance: MECLIZINE HYDROCHLORIDE
  4. VITAMINS [Concomitant]
     Active Substance: VITAMINS
  5. VITAMIN D3 [Concomitant]
     Active Substance: CHOLECALCIFEROL
  6. metoprolol succ er tablet [Concomitant]
  7. LATANOPROST [Concomitant]
     Active Substance: LATANOPROST
  8. LEVOTHYROXINE [Concomitant]
     Active Substance: LEVOTHYROXINE
  9. XYZAL [Concomitant]
     Active Substance: LEVOCETIRIZINE DIHYDROCHLORIDE
  10. CABERGOLINE [Concomitant]
     Active Substance: CABERGOLINE
  11. sodium flouride 1.1% dental paste [Concomitant]
  12. KETOCONAZOLE [Concomitant]
     Active Substance: KETOCONAZOLE
  13. baby aspirin ec tablet 81 mg [Concomitant]
  14. QUETIAPINE [Concomitant]
     Active Substance: QUETIAPINE
  15. fumarate [Concomitant]
  16. SIMVASTATIN [Concomitant]
     Active Substance: SIMVASTATIN
  17. FAMOTIDINE [Concomitant]
     Active Substance: FAMOTIDINE
  18. WEGOVY [Concomitant]
     Active Substance: SEMAGLUTIDE
  19. VENTOLIN [Concomitant]
     Active Substance: ALBUTEROL SULFATE
  20. MIRALAX [Concomitant]
     Active Substance: POLYETHYLENE GLYCOL 3350
  21. TYLENOL EXTRA STRENGTH [Concomitant]
     Active Substance: ACETAMINOPHEN

REACTIONS (2)
  - Cough [None]
  - Wheezing [None]

NARRATIVE: CASE EVENT DATE: 20250601
